FAERS Safety Report 21784602 (Version 4)
Quarter: 2023Q4

REPORT INFORMATION
  Report Type: Spontaneous
  Country: CA (occurrence: CA)
  Receive Date: 20221227
  Receipt Date: 20231128
  Transmission Date: 20240110
  Serious: Yes (Other)
  Sender: FDA-Public Use
  Company Number: CA-PFIZER INC-202200063616

PATIENT
  Age: 64 Year
  Sex: Female

DRUGS (23)
  1. RUXIENCE [Suspect]
     Active Substance: RITUXIMAB-PVVR
     Indication: Rheumatoid arthritis
     Dosage: 1000MG DAY 1 AND DAY 15
     Route: 042
     Dates: start: 20220111
  2. RUXIENCE [Suspect]
     Active Substance: RITUXIMAB-PVVR
     Dosage: 1000MG DAY 1 AND DAY 15
     Route: 042
     Dates: start: 20220125
  3. RUXIENCE [Suspect]
     Active Substance: RITUXIMAB-PVVR
     Dosage: 1000MG DAY 1 AND DAY 15
     Route: 042
     Dates: start: 20230203
  4. BACLOFEN [Concomitant]
     Active Substance: BACLOFEN
     Dosage: 10 MG, 3X/DAY
     Route: 048
  5. DILTIZEM [Concomitant]
     Dosage: 120 MG, DAILY
     Route: 048
  6. DILTIZEM [Concomitant]
     Dosage: 120 MG, 1X/DAY
     Route: 048
  7. HYDROXYCHLOROQUINE [Concomitant]
     Active Substance: HYDROXYCHLOROQUINE
     Dosage: UNK
  8. ISOSORBIDE MONONITRATE [Concomitant]
     Active Substance: ISOSORBIDE MONONITRATE
     Dosage: 30 MG, DAILY
     Route: 048
  9. ISOSORBIDE MONONITRATE [Concomitant]
     Active Substance: ISOSORBIDE MONONITRATE
     Dosage: 30 MG, 1X/DAY
     Route: 048
  10. METHOTREXATE [Concomitant]
     Active Substance: METHOTREXATE
     Dosage: 10 PILLS ONCE WEEK
  11. METHOTREXATE [Concomitant]
     Active Substance: METHOTREXATE
     Dosage: 25 MG, WEEKLY
     Route: 048
  12. MIRABEGRON [Concomitant]
     Active Substance: MIRABEGRON
     Dosage: 25 MG, DAILY
     Route: 048
  13. MIRABEGRON [Concomitant]
     Active Substance: MIRABEGRON
     Dosage: 25 MG, 1X/DAY
     Route: 048
  14. NORTRIPTYLINE [Concomitant]
     Active Substance: NORTRIPTYLINE
     Dosage: 10 MG, DAILY
     Route: 048
  15. NORTRIPTYLINE [Concomitant]
     Active Substance: NORTRIPTYLINE
     Dosage: 10 MG, 1X/DAY
     Route: 048
  16. PREDNISONE [Concomitant]
     Active Substance: PREDNISONE
     Dosage: UNK
  17. SULFASALAZINE [Concomitant]
     Active Substance: SULFASALAZINE
     Dosage: UNK
  18. SPIRIVA [Concomitant]
     Active Substance: TIOTROPIUM BROMIDE MONOHYDRATE
     Dosage: 1 DF, 2 PUFFS,  INHALATION
     Route: 055
  19. TOVIAZ [Concomitant]
     Active Substance: FESOTERODINE FUMARATE
     Dosage: 4 MG, DAILY
     Route: 048
  20. TOVIAZ [Concomitant]
     Active Substance: FESOTERODINE FUMARATE
     Dosage: 4 MG, 1X/DAY
     Route: 048
  21. WARFARIN [Concomitant]
     Active Substance: WARFARIN
     Dosage: UNK
  22. WARFARIN [Concomitant]
     Active Substance: WARFARIN
     Dosage: 3 MG, DAILY
     Route: 048
  23. WARFARIN [Concomitant]
     Active Substance: WARFARIN
     Dosage: 3 MG, 1X/DAY
     Route: 048

REACTIONS (12)
  - Rheumatoid arthritis [Not Recovered/Not Resolved]
  - Condition aggravated [Recovering/Resolving]
  - Ear pruritus [Recovered/Resolved]
  - Flushing [Recovering/Resolving]
  - Fall [Unknown]
  - Joint instability [Unknown]
  - Asthenia [Unknown]
  - Infusion site pain [Unknown]
  - Infusion site swelling [Unknown]
  - Balance disorder [Unknown]
  - Impaired quality of life [Not Recovered/Not Resolved]
  - Bladder dysfunction [Recovered/Resolved]

NARRATIVE: CASE EVENT DATE: 20220101
